FAERS Safety Report 14968567 (Version 1)
Quarter: 2018Q2

REPORT INFORMATION
  Report Type: Spontaneous
  Country: US (occurrence: US)
  Receive Date: 20180511
  Receipt Date: 20180511
  Transmission Date: 20180711
  Serious: No
  Sender: FDA-Public Use
  Company Number: None

PATIENT
  Age: 40 Year
  Sex: Female

DRUGS (1)
  1. MAVYRET [Suspect]
     Active Substance: GLECAPREVIR\PIBRENTASVIR
     Indication: HEPATITIS C
     Route: 048
     Dates: start: 20180306

REACTIONS (6)
  - Feeling cold [None]
  - Vision blurred [None]
  - Peripheral coldness [None]
  - Head discomfort [None]
  - Pain [None]
  - Dehydration [None]

NARRATIVE: CASE EVENT DATE: 20180508
